FAERS Safety Report 5770585-1 (Version None)
Quarter: 2008Q2

REPORT INFORMATION
  Report Type: 
  Country: None (occurrence: None)
  Receive Date: 20080613
  Receipt Date: 20080507
  Transmission Date: 20081010
  Serious: No
  Sender: FDA-Public Use
  Company Number: US-ABBOTT-08P-163-0450854-00

PATIENT
  Sex: Female
  Weight: 77.18 kg

DRUGS (6)
  1. HUMIRA [Suspect]
     Indication: CROHN'S DISEASE
     Route: 058
     Dates: start: 20070621
  2. MERCAPTOPURINE [Concomitant]
     Indication: CROHN'S DISEASE
     Route: 048
  3. GLICLAZIDE [Concomitant]
     Indication: SWELLING
     Dosage: EVERY OTHER DAY
     Route: 048
     Dates: start: 20070101
  4. ATOMOXETINE HCL [Concomitant]
     Indication: ATTENTION DEFICIT/HYPERACTIVITY DISORDER
     Route: 048
  5. CENTRUM [Concomitant]
     Indication: DRUG USE FOR UNKNOWN INDICATION
     Route: 048
  6. LEVONORGESTREL [Concomitant]
     Indication: OVARIAN CYST
     Dosage: ONE 1/35 CAPSULE DAILY
     Route: 048

REACTIONS (1)
  - PAPILLOMA VIRAL INFECTION [None]
